FAERS Safety Report 5892402-1 (Version None)
Quarter: 2008Q3

REPORT INFORMATION
  Report Type: 
  Country: None (occurrence: None)
  Receive Date: 20080919
  Receipt Date: 20080919
  Transmission Date: 20090109
  Serious: Yes (Life-Threatening, Hospitalization, Other)
  Sender: FDA-Public Use
  Company Number: None

PATIENT
  Age: 40 Year
  Sex: Female
  Weight: 98.8842 kg

DRUGS (4)
  1. ZOLOFT [Suspect]
     Indication: MAJOR DEPRESSION
     Dosage: 1 TABLET EVERY MORNING EVERY MORNING PO
     Route: 048
     Dates: start: 19980602
  2. ZOLOFT [Suspect]
     Indication: OBSESSIVE-COMPULSIVE DISORDER
     Dosage: 1 TABLET EVERY MORNING EVERY MORNING PO
     Route: 048
     Dates: start: 19980602
  3. SEROQUEL [Suspect]
     Indication: PERSONALITY DISORDER
     Dosage: 1 TABLET EVERY MORNING PO
     Route: 048
     Dates: start: 20030312
  4. SEROQUEL [Suspect]
     Indication: SCHIZOPHRENIA
     Dosage: 1 TABLET EVERY MORNING PO
     Route: 048
     Dates: start: 20030312

REACTIONS (6)
  - DIZZINESS [None]
  - DYSPEPSIA [None]
  - DYSPHAGIA [None]
  - HAEMORRHOIDS [None]
  - HEADACHE [None]
  - VISION BLURRED [None]
